FAERS Safety Report 13178732 (Version 4)
Quarter: 2018Q3

REPORT INFORMATION
  Report Type: Spontaneous
  Country: ES (occurrence: ES)
  Receive Date: 20170202
  Receipt Date: 20180702
  Transmission Date: 20181010
  Serious: Yes (Other)
  Sender: FDA-Public Use
  Company Number: ES-AUROBINDO-AUR-APL-2017-10761

PATIENT
  Age: 8 Decade
  Sex: Male

DRUGS (8)
  1. TEDIZOLID [Suspect]
     Active Substance: TEDIZOLID
     Indication: MYCOBACTERIUM AVIUM COMPLEX INFECTION
  2. AZITHROMYCIN ANHYDROUS. [Concomitant]
     Active Substance: AZITHROMYCIN ANHYDROUS
     Indication: PRODUCT USED FOR UNKNOWN INDICATION
     Dosage: 250 MG, DAILY
     Route: 065
  3. AZITHROMYCIN ANHYDROUS. [Concomitant]
     Active Substance: AZITHROMYCIN ANHYDROUS
     Indication: MYCOBACTERIUM AVIUM COMPLEX INFECTION
     Route: 048
  4. ETHAMBUTOL [Concomitant]
     Active Substance: ETHAMBUTOL HYDROCHLORIDE
     Indication: PRODUCT USED FOR UNKNOWN INDICATION
     Dosage: 15 MG/KG, DAILY
     Route: 065
  5. ETHAMBUTOL [Concomitant]
     Active Substance: ETHAMBUTOL HYDROCHLORIDE
     Indication: MYCOBACTERIUM KANSASII INFECTION
     Route: 048
  6. LINEZOLID 600 MG [Suspect]
     Active Substance: LINEZOLID
     Indication: MYCOBACTERIUM KANSASII INFECTION
     Dosage: 600 MG, TWO TIMES A DAY
     Route: 048
  7. LINEZOLID 600 MG [Suspect]
     Active Substance: LINEZOLID
     Indication: MYCOBACTERIUM AVIUM COMPLEX INFECTION
  8. TEDIZOLID [Suspect]
     Active Substance: TEDIZOLID
     Indication: MYCOBACTERIUM KANSASII INFECTION
     Dosage: 200 MG, ONCE A DAY
     Route: 065

REACTIONS (8)
  - White blood cell count decreased [Not Recovered/Not Resolved]
  - Platelet count decreased [Recovered/Resolved]
  - Toxicity to various agents [Recovering/Resolving]
  - Haematotoxicity [Unknown]
  - Gastrointestinal disorder [Unknown]
  - Nausea [Recovered/Resolved]
  - Anaemia [Recovering/Resolving]
  - Bone marrow failure [Recovering/Resolving]
